FAERS Safety Report 12505246 (Version 1)
Quarter: 2016Q2

REPORT INFORMATION
  Report Type: Spontaneous
  Country: GB (occurrence: GB)
  Receive Date: 20160628
  Receipt Date: 20160628
  Transmission Date: 20160815
  Serious: Yes (Other)
  Sender: FDA-Public Use
  Company Number: GB-PFIZER INC-2016317514

PATIENT
  Age: 17 Year
  Sex: Female
  Weight: 53 kg

DRUGS (2)
  1. FERROUS FUMARATE [Concomitant]
     Active Substance: FERROUS FUMARATE
     Dosage: UNK
  2. SERTRALINE HCL [Suspect]
     Active Substance: SERTRALINE HYDROCHLORIDE
     Indication: SOCIAL ANXIETY DISORDER
     Dosage: 100 MG, UNK
     Route: 048

REACTIONS (5)
  - Drug dependence [Unknown]
  - Product use issue [Unknown]
  - Urge incontinence [Unknown]
  - Depression suicidal [Not Recovered/Not Resolved]
  - Cognitive disorder [Unknown]
